FAERS Safety Report 9580418 (Version 2)
Quarter: 2013Q4

REPORT INFORMATION
  Report Type: Report from Study
  Country: US (occurrence: US)
  Receive Date: 20131002
  Receipt Date: 20131028
  Transmission Date: 20140711
  Serious: Yes (Other)
  Sender: FDA-Public Use
  Company Number: US-NAPPMUNDI-USA-2013-0106856

PATIENT
  Age: 62 Year
  Sex: Female

DRUGS (2)
  1. OXYCONTIN (NDA 22-272) [Suspect]
     Indication: BREAST CANCER
     Dosage: 40 MG, SEE TEXT
     Route: 048
  2. OXYCONTIN (NDA 22-272) [Suspect]
     Dosage: 60 MG, SEE TEXT
     Route: 048

REACTIONS (3)
  - Brain neoplasm [Unknown]
  - Malignant neoplasm progression [Unknown]
  - Pain [Unknown]
